FAERS Safety Report 10472406 (Version 3)
Quarter: 2015Q1

REPORT INFORMATION
  Report Type: Spontaneous
  Country: JP (occurrence: JP)
  Receive Date: 20140924
  Receipt Date: 20150226
  Transmission Date: 20150720
  Serious: Yes (Death)
  Sender: FDA-Public Use
  Company Number: PHHY2014JP122348

PATIENT
  Age: 77 Year
  Sex: Male

DRUGS (1)
  1. GLIVEC [Suspect]
     Active Substance: IMATINIB MESYLATE
     Indication: GASTROINTESTINAL STROMAL TUMOUR
     Dosage: 400 MG, UNK
     Route: 048
     Dates: start: 201206, end: 201206

REACTIONS (8)
  - Gastrointestinal stromal tumour [Fatal]
  - Metastases to pancreas [Fatal]
  - Malignant neoplasm progression [Fatal]
  - Metastases to lymph nodes [Fatal]
  - Decreased appetite [Fatal]
  - Metastases to spleen [Fatal]
  - Metastases to adrenals [Fatal]
  - Metastases to liver [Fatal]
